FAERS Safety Report 9154278 (Version 2)
Quarter: 2013Q4

REPORT INFORMATION
  Report Type: Spontaneous
  Country: DK (occurrence: DK)
  Receive Date: 20130311
  Receipt Date: 20131202
  Transmission Date: 20140711
  Serious: Yes (Disabling)
  Sender: FDA-Public Use
  Company Number: DK-SANOFI-AVENTIS-2013SA021560

PATIENT
  Age: 52 Year
  Sex: Female
  Weight: 70 kg

DRUGS (2)
  1. NASACORT [Suspect]
     Indication: HYPERSENSITIVITY
     Dosage: DOSIS: VED BEHOV. STYRKE: 55 MIKG/DOSIS
     Route: 045
     Dates: start: 20090129, end: 20100216
  2. DEPO-MEDROL [Suspect]
     Indication: ROTATOR CUFF SYNDROME
     Dosage: DOSIS: 40 MG. EN ENKELT INJEKTION. STYRKE: 40 MG/ML
     Route: 065
     Dates: start: 20050525, end: 20050525

REACTIONS (1)
  - Chorioretinopathy [Not Recovered/Not Resolved]
